FAERS Safety Report 5139400-3 (Version None)
Quarter: 2006Q4

REPORT INFORMATION
  Report Type: 
  Country: None (occurrence: None)
  Receive Date: 20061030
  Receipt Date: 20051101
  Transmission Date: 20070319
  Serious: Yes (Life-Threatening, Disabling)
  Sender: FDA-Public Use
  Company Number: US-GLAXOSMITHKLINE-A0580484A

PATIENT
  Age: 70 Year
  Sex: Female
  Weight: 66.4 kg

DRUGS (6)
  1. SEREVENT [Suspect]
     Indication: CHRONIC OBSTRUCTIVE PULMONARY DISEASE
     Dosage: 1PUFF TWICE PER DAY
     Route: 055
  2. FLONASE [Concomitant]
  3. NEURONTIN [Concomitant]
  4. SINGULAIR [Concomitant]
  5. FOSAMAX [Concomitant]
  6. AEROBID [Concomitant]

REACTIONS (2)
  - DYSPNOEA [None]
  - PHARMACEUTICAL PRODUCT COMPLAINT [None]
